FAERS Safety Report 12728503 (Version 1)
Quarter: 2016Q3

REPORT INFORMATION
  Report Type: Spontaneous
  Country: US (occurrence: US)
  Receive Date: 20160907
  Receipt Date: 20160907
  Transmission Date: 20161109
  Serious: Yes (Disabling)
  Sender: FDA-Public Use
  Company Number: None

PATIENT
  Age: 56 Year
  Sex: Female
  Weight: 51.75 kg

DRUGS (5)
  1. LEVAQUIN [Suspect]
     Active Substance: LEVOFLOXACIN
     Indication: SINUSITIS
     Dosage: OTHER STRENGTH:;OTHER DOSE:1 TABLET;OTHER FREQUENCY:;OTHER ROUTE:
     Route: 048
     Dates: start: 20081031, end: 20081105
  2. PROBIOTIC [Concomitant]
     Active Substance: PROBIOTICS NOS
  3. XANAX [Concomitant]
     Active Substance: ALPRAZOLAM
  4. LEVAQUIN [Concomitant]
     Active Substance: LEVOFLOXACIN
     Indication: SINUSITIS
     Route: 048
     Dates: start: 20081031, end: 20090306
  5. VITAMIN C [Concomitant]
     Active Substance: ASCORBIC ACID

REACTIONS (17)
  - Pain [None]
  - Tenosynovitis stenosans [None]
  - Restless legs syndrome [None]
  - Anxiety [None]
  - Neuropathy peripheral [None]
  - Demyelination [None]
  - Tendon injury [None]
  - Impaired quality of life [None]
  - Myositis [None]
  - Body temperature abnormal [None]
  - Activities of daily living impaired [None]
  - Candida infection [None]
  - Spinal osteoarthritis [None]
  - Vitreous floaters [None]
  - Impaired gastric emptying [None]
  - Pain in extremity [None]
  - Feeling abnormal [None]

NARRATIVE: CASE EVENT DATE: 20081031
